FAERS Safety Report 12434923 (Version 1)
Quarter: 2016Q2

REPORT INFORMATION
  Report Type: Spontaneous
  Country: US (occurrence: US)
  Receive Date: 20160603
  Receipt Date: 20160603
  Transmission Date: 20160815
  Serious: No
  Sender: FDA-Public Use
  Company Number: US-ROCHE-1607754

PATIENT
  Sex: Male

DRUGS (2)
  1. VENLAFAXINE [Concomitant]
     Active Substance: VENLAFAXINE HYDROCHLORIDE
     Indication: DEPRESSION
  2. KLONOPIN [Suspect]
     Active Substance: CLONAZEPAM
     Indication: ANXIETY
     Route: 065
     Dates: end: 20150609

REACTIONS (5)
  - Heart rate increased [Not Recovered/Not Resolved]
  - Dyspnoea [Not Recovered/Not Resolved]
  - Feeling hot [Not Recovered/Not Resolved]
  - Panic attack [Not Recovered/Not Resolved]
  - Withdrawal syndrome [Not Recovered/Not Resolved]
